FAERS Safety Report 5393959-X (Version None)
Quarter: 2007Q3

REPORT INFORMATION
  Report Type: 
  Country: None (occurrence: None)
  Receive Date: 20070723
  Receipt Date: 20061201
  Transmission Date: 20080115
  Serious: Yes (Other)
  Sender: FDA-Public Use
  Company Number: A0630078A

PATIENT
  Sex: Male

DRUGS (2)
  1. AVANDIA [Suspect]
     Dosage: 8MG PER DAY
     Route: 048
     Dates: start: 20060401
  2. GLYBURIDE [Concomitant]

REACTIONS (3)
  - MACULAR OEDEMA [None]
  - OEDEMA PERIPHERAL [None]
  - VISION BLURRED [None]
